FAERS Safety Report 14125092 (Version 1)
Quarter: 2017Q4

REPORT INFORMATION
  Report Type: Spontaneous
  Country: US (occurrence: US)
  Receive Date: 20171025
  Receipt Date: 20171025
  Transmission Date: 20180321
  Serious: No
  Sender: FDA-Public Use
  Company Number: US-PERRIGO-17US001287

PATIENT
  Age: 70 Year
  Sex: Male
  Weight: 70.3 kg

DRUGS (4)
  1. AVODART [Concomitant]
     Active Substance: DUTASTERIDE
     Indication: PROSTATOMEGALY
     Dosage: UNK
     Route: 065
     Dates: start: 2011
  2. NICOTINE POLACRILEX [Suspect]
     Active Substance: NICOTINE
     Dosage: 4 MG, TWICE
     Route: 048
     Dates: start: 20170131, end: 20170201
  3. MORPHINE [Concomitant]
     Active Substance: MORPHINE
     Indication: NERVE COMPRESSION
     Dosage: UNK
     Route: 065
     Dates: start: 2013
  4. NICOTINE POLACRILEX [Suspect]
     Active Substance: NICOTINE
     Indication: SMOKING CESSATION THERAPY
     Dosage: 4 MG, EVERY 4 TO 8 HOURS
     Route: 002
     Dates: start: 20170101

REACTIONS (1)
  - Incorrect route of drug administration [Recovered/Resolved]

NARRATIVE: CASE EVENT DATE: 20170131
